FAERS Safety Report 25152187 (Version 1)
Quarter: 2025Q2

REPORT INFORMATION
  Report Type: Report from Study
  Country: US (occurrence: US)
  Receive Date: 20250402
  Receipt Date: 20250402
  Transmission Date: 20250716
  Serious: Yes (Other)
  Sender: JOHNSON AND JOHNSON
  Company Number: US-JNJFOC-20250214190

PATIENT

DRUGS (3)
  1. TREMFYA [Suspect]
     Active Substance: GUSELKUMAB
     Indication: Psoriasis
  2. TREMFYA [Suspect]
     Active Substance: GUSELKUMAB
     Indication: Psoriatic arthropathy
     Dosage: WEEK 0
  3. TREMFYA [Suspect]
     Active Substance: GUSELKUMAB
     Dosage: WEEK 0

REACTIONS (9)
  - Cardiomyopathy [Unknown]
  - Cardiac failure congestive [Unknown]
  - Neoplasm malignant [Unknown]
  - Hepatic enzyme abnormal [Recovered/Resolved]
  - Memory impairment [Unknown]
  - Anxiety [Unknown]
  - Asthenia [Unknown]
  - Herpes simplex [Unknown]
  - Unevaluable event [Unknown]

NARRATIVE: CASE EVENT DATE: 20140101
